FAERS Safety Report 10896610 (Version 2)
Quarter: 2015Q1

REPORT INFORMATION
  Report Type: Spontaneous
  Country: IT (occurrence: None)
  Receive Date: 20150302
  Receipt Date: 20150326
  Transmission Date: 20150721
  Serious: Yes (Other)
  Sender: FDA-Public Use
  Company Number: 2755239

PATIENT
  Age: 72 Year
  Sex: Male
  Weight: 67 kg

DRUGS (5)
  1. AVASTIN [Suspect]
     Active Substance: BEVACIZUMAB
     Indication: COLORECTAL CANCER METASTATIC
     Dosage: 320 MG MILLIGRAM(S), CYCLICAL
     Route: 042
     Dates: start: 20140513, end: 20141127
  2. IRINOTECAN HYDROCHLORIDE. [Suspect]
     Active Substance: IRINOTECAN HYDROCHLORIDE
     Indication: COLORECTAL CANCER METASTATIC
     Dosage: 200 MG MILLIGRAM(S), CYCLICAL
     Route: 042
     Dates: start: 20140422, end: 20141007
  3. FLUOROURACIL. [Suspect]
     Active Substance: FLUOROURACIL
     Indication: COLORECTAL CANCER METASTATIC
     Dosage: 2800 MG MILLIGRAM(S), CYCLICAL
     Route: 041
     Dates: start: 20140422, end: 20141007
  4. TRIATEC [Concomitant]
     Active Substance: RAMIPRIL
  5. LEVOFOLINIC ACID [Concomitant]
     Active Substance: LEVOLEUCOVORIN

REACTIONS (1)
  - Hypertensive crisis [None]

NARRATIVE: CASE EVENT DATE: 20140527
